FAERS Safety Report 8013668-8 (Version None)
Quarter: 2011Q4

REPORT INFORMATION
  Report Type: 
  Country: None (occurrence: None)
  Receive Date: 20111229
  Receipt Date: 20111219
  Transmission Date: 20120403
  Serious: Yes (Death)
  Sender: FDA-Public Use
  Company Number: US-PFIZER INC-2011310262

PATIENT
  Age: 32 Year
  Sex: Female

DRUGS (5)
  1. OXYCODONE HCL [Suspect]
     Dosage: UNK
     Route: 048
  2. ACETAMINOPHEN AND HYDROCODONE BITARTRATE [Suspect]
     Dosage: UNK
     Route: 048
  3. VENLAFAXINE HCL [Suspect]
     Route: 048
  4. NORTRIPTYLINE HYDROCHLORIDE [Suspect]
     Dosage: UNK
     Route: 048
  5. NORTRIPTYLINE HCL [Suspect]
     Dosage: UNK
     Route: 048

REACTIONS (3)
  - DEATH [None]
  - RESPIRATORY ARREST [None]
  - CARDIAC ARREST [None]
